FAERS Safety Report 7050191-1 (Version None)
Quarter: 2010Q4

REPORT INFORMATION
  Report Type: 
  Country: None (occurrence: None)
  Receive Date: 20101018
  Receipt Date: 20101012
  Transmission Date: 20110411
  Serious: Yes (Life-Threatening, Hospitalization)
  Sender: FDA-Public Use
  Company Number: NZ-SANOFI-AVENTIS-2010SA042351

PATIENT
  Sex: Female
  Weight: 25.34 kg

DRUGS (3)
  1. CLIKSTAR [Suspect]
  2. LANTUS [Suspect]
  3. REGULAR INSULIN [Concomitant]
     Dates: start: 20060101

REACTIONS (1)
  - DIABETIC KETOACIDOSIS [None]
